FAERS Safety Report 10003907 (Version 1)
Quarter: 2014Q1

REPORT INFORMATION
  Report Type: Spontaneous
  Country: DE (occurrence: DE)
  Receive Date: 20140312
  Receipt Date: 20140312
  Transmission Date: 20141002
  Serious: Yes (Hospitalization)
  Sender: FDA-Public Use
  Company Number: DE-ABBVIE-14P-062-1210090-00

PATIENT
  Sex: Female

DRUGS (3)
  1. HUMIRA [Suspect]
     Indication: ANKYLOSING SPONDYLITIS
     Route: 058
     Dates: start: 20100217, end: 201307
  2. HUMIRA [Suspect]
     Route: 058
     Dates: start: 201402
  3. CONTRACEPTIVE PILL [Concomitant]
     Indication: CONTRACEPTION

REACTIONS (2)
  - Vaginal haemorrhage [Recovering/Resolving]
  - Smear cervix abnormal [Recovering/Resolving]
